FAERS Safety Report 4885328-3 (Version None)
Quarter: 2006Q1

REPORT INFORMATION
  Report Type: 
  Country: None (occurrence: None)
  Receive Date: 20060119
  Receipt Date: 20051103
  Transmission Date: 20060701
  Serious: Yes (Death)
  Sender: FDA-Public Use
  Company Number: CH-BRISTOL-MYERS SQUIBB COMPANY-13167192

PATIENT

DRUGS (1)
  1. REYATAZ [Suspect]

REACTIONS (1)
  - PANCREATITIS [None]
